FAERS Safety Report 24993930 (Version 1)
Quarter: 2025Q1

REPORT INFORMATION
  Report Type: Spontaneous
  Country: BE (occurrence: BE)
  Receive Date: 20250221
  Receipt Date: 20250221
  Transmission Date: 20250409
  Serious: Yes (Hospitalization)
  Sender: MACLEODS
  Company Number: BE-MLMSERVICE-20250204-PI387849-00330-1

PATIENT

DRUGS (3)
  1. VENLAFAXINE [Suspect]
     Active Substance: VENLAFAXINE HYDROCHLORIDE
     Indication: Depression
     Dosage: IN THE MORNING AND THEN TAPERED DOWN BEFORE STOPPED
     Route: 065
  2. ATOMOXETINE [Suspect]
     Active Substance: ATOMOXETINE
     Indication: Attention deficit hyperactivity disorder
     Dosage: IN THE MORNING AND THEN TAPERED DOWN BEFORE STOPPED
     Route: 065
  3. BILASTINE [Concomitant]
     Active Substance: BILASTINE
     Dosage: IN THE MORNING AND UNCHANGED FOR MORE THAN 3 MONTHS
     Route: 065

REACTIONS (1)
  - Reversible cerebral vasoconstriction syndrome [Recovered/Resolved]
